FAERS Safety Report 12990361 (Version 1)
Quarter: 2016Q4

REPORT INFORMATION
  Report Type: Spontaneous
  Country: FR (occurrence: FR)
  Receive Date: 20161201
  Receipt Date: 20161201
  Transmission Date: 20170207
  Serious: Yes (Hospitalization, Other)
  Sender: FDA-Public Use
  Company Number: FR-GLAXOSMITHKLINE-FR2013GSK000518

PATIENT
  Age: 55 Year
  Sex: Female

DRUGS (14)
  1. TAHOR [Concomitant]
     Active Substance: ATORVASTATIN CALCIUM
  2. RAPIFEN [Concomitant]
     Active Substance: ALFENTANIL HYDROCHLORIDE
  3. ASPEGIC [Concomitant]
     Active Substance: ASPIRIN DL-LYSINE
     Dosage: UNK
     Dates: start: 20121109
  4. SECTRAL [Concomitant]
     Active Substance: ACEBUTOLOL HYDROCHLORIDE
  5. NICOPATCH [Suspect]
     Active Substance: NICOTINE
     Indication: PRODUCT USED FOR UNKNOWN INDICATION
     Dosage: 21 MG, QD
     Route: 062
     Dates: start: 20121118
  6. ALPRAZOLAM. [Concomitant]
     Active Substance: ALPRAZOLAM
  7. XYLOCAINE [Concomitant]
     Active Substance: LIDOCAINE HYDROCHLORIDE
  8. COVERSYL [Concomitant]
     Active Substance: PERINDOPRIL
  9. PLAVIX [Concomitant]
     Active Substance: CLOPIDOGREL BISULFATE
  10. VASTAREL [Concomitant]
     Active Substance: TRIMETAZIDINE DIHYDROCHLORIDE
     Dosage: UNK
     Dates: start: 20121118
  11. NAROPEINE [Concomitant]
     Active Substance: ROPIVACAINE HYDROCHLORIDE
     Dosage: UNK
     Dates: start: 20121116
  12. HEPARIN SODIUM. [Concomitant]
     Active Substance: HEPARIN SODIUM
  13. HYDROXYZINE [Concomitant]
     Active Substance: HYDROXYZINE\HYDROXYZINE HYDROCHLORIDE
  14. DEDROGYL [Concomitant]
     Active Substance: CALCIFEDIOL

REACTIONS (2)
  - Cerebrovascular accident [Unknown]
  - Reversible cerebral vasoconstriction syndrome [Unknown]

NARRATIVE: CASE EVENT DATE: 20121119
